FAERS Safety Report 7987501-4 (Version None)
Quarter: 2011Q4

REPORT INFORMATION
  Report Type: 
  Country: None (occurrence: None)
  Receive Date: 20111216
  Receipt Date: 20111209
  Transmission Date: 20120403
  Serious: Yes (Life-Threatening, Other)
  Sender: FDA-Public Use
  Company Number: PHHY2011US01457

PATIENT
  Sex: Female
  Weight: 81 kg

DRUGS (1)
  1. RECLAST [Suspect]
     Dosage: 5 MG, UNK
     Dates: start: 20101201

REACTIONS (12)
  - WHITE BLOOD CELL COUNT INCREASED [None]
  - INFLUENZA LIKE ILLNESS [None]
  - MYALGIA [None]
  - ARTHROPATHY [None]
  - OEDEMA PERIPHERAL [None]
  - PNEUMONIA [None]
  - PAIN IN EXTREMITY [None]
  - BLOOD PRESSURE INCREASED [None]
  - DIARRHOEA [None]
  - ARTHRALGIA [None]
  - PYREXIA [None]
  - PAIN [None]
